FAERS Safety Report 11648277 (Version 1)
Quarter: 2015Q4

REPORT INFORMATION
  Report Type: Spontaneous
  Country: US (occurrence: US)
  Receive Date: 20151021
  Receipt Date: 20151021
  Transmission Date: 20160304
  Serious: No
  Sender: FDA-Public Use
  Company Number: US-PFIZER INC-2015353255

PATIENT
  Age: 61 Year
  Sex: Male
  Weight: 105 kg

DRUGS (4)
  1. METOLAZONE. [Suspect]
     Active Substance: METOLAZONE
     Dosage: 1X2.5 MG TABLET, ONCE DAILY
     Route: 048
     Dates: start: 20150714
  2. FUROSEMIDE. [Suspect]
     Active Substance: FUROSEMIDE
     Indication: OEDEMA DUE TO HEPATIC DISEASE
     Dosage: 2X40 MG TABLET, ONCE DAILY
     Route: 048
  3. FUROSEMIDE. [Suspect]
     Active Substance: FUROSEMIDE
     Dosage: 160 MG, ONCE DAILY (DIFFERENT DOSE REGIMEN)
     Route: 048
  4. SPIRONOLACTONE. [Suspect]
     Active Substance: SPIRONOLACTONE
     Dosage: 3X100 MG TABLET, ONCE DAILY
     Route: 048

REACTIONS (1)
  - Dizziness [Unknown]
